FAERS Safety Report 6935108-X (Version None)
Quarter: 2010Q3

REPORT INFORMATION
  Report Type: 
  Country: None (occurrence: None)
  Receive Date: 20100822
  Receipt Date: 20100812
  Transmission Date: 20110219
  Serious: Yes (Hospitalization)
  Sender: FDA-Public Use
  Company Number: PHHO2010US12576

PATIENT
  Sex: Male
  Weight: 89 kg

DRUGS (4)
  1. AFINITOR [Suspect]
     Indication: SMALL CELL LUNG CANCER STAGE UNSPECIFIED
     Dosage: 5MG/DAY
     Route: 048
     Dates: start: 20100623
  2. PERCOCET [Concomitant]
  3. OXYCODONE [Concomitant]
  4. CORRECTOL [Concomitant]

REACTIONS (3)
  - DYSPNOEA [None]
  - PERICARDIAL EFFUSION [None]
  - PERICARDIAL EXCISION [None]
